FAERS Safety Report 17262292 (Version 1)
Quarter: 2020Q1

REPORT INFORMATION
  Report Type: Report from Study
  Country: ES (occurrence: ES)
  Receive Date: 20200113
  Receipt Date: 20200113
  Transmission Date: 20200409
  Serious: Yes (Other)
  Sender: FDA-Public Use
  Company Number: ES-TEVA-2020-ES-1166770

PATIENT
  Age: 75 Year
  Sex: Female

DRUGS (2)
  1. NAPROXENO [Suspect]
     Active Substance: NAPROXEN
     Indication: ARTHRALGIA
     Route: 048
     Dates: start: 20190817, end: 20190829
  2. TRAMADOL. [Suspect]
     Active Substance: TRAMADOL
     Indication: MYALGIA
     Route: 048
     Dates: start: 20190817, end: 20190829

REACTIONS (1)
  - Dysarthria [Recovered/Resolved]

NARRATIVE: CASE EVENT DATE: 20190829
